APPROVED DRUG PRODUCT: ADALAT CC
Active Ingredient: NIFEDIPINE
Strength: 90MG **Federal Register determination that product was not discontinued or withdrawn for safety or effectiveness reasons**
Dosage Form/Route: TABLET, EXTENDED RELEASE;ORAL
Application: N020198 | Product #003
Applicant: NORWICH PHARMACEUTICALS INC
Approved: Apr 21, 1993 | RLD: Yes | RS: No | Type: DISCN